FAERS Safety Report 11811217 (Version 1)
Quarter: 2015Q4

REPORT INFORMATION
  Report Type: Spontaneous
  Country: US (occurrence: None)
  Receive Date: 20151207
  Receipt Date: 20151207
  Transmission Date: 20160305
  Serious: No
  Sender: FDA-Public Use
  Company Number: None

PATIENT
  Age: 60 Year
  Sex: Male
  Weight: 88.4 kg

DRUGS (2)
  1. GEMCITABINE HYDROCHLORIDE. [Suspect]
     Active Substance: GEMCITABINE HYDROCHLORIDE
     Dates: end: 20151118
  2. PACLITAXEL PROTEIN-BOUND PARTICLES (ALBUMIN-(BOUND) [Suspect]
     Active Substance: PACLITAXEL
     Dates: end: 20151118

REACTIONS (1)
  - No adverse event [None]

NARRATIVE: CASE EVENT DATE: 20151125
